FAERS Safety Report 23665571 (Version 1)
Quarter: 2024Q1

REPORT INFORMATION
  Report Type: Spontaneous
  Country: GB (occurrence: GB)
  Receive Date: 20240323
  Receipt Date: 20240323
  Transmission Date: 20240409
  Serious: Yes (Other)
  Sender: FDA-Public Use
  Company Number: None

PATIENT
  Age: 31 Year
  Sex: Male
  Weight: 83 kg

DRUGS (2)
  1. ADALIMUMAB [Suspect]
     Active Substance: ADALIMUMAB\ISOPROPYL ALCOHOL
     Indication: Psoriasis
     Route: 058
     Dates: start: 20231120, end: 20240306
  2. ADALIMUMAB [Suspect]
     Active Substance: ADALIMUMAB\ISOPROPYL ALCOHOL
     Indication: Product used for unknown indication
     Route: 065
     Dates: start: 202311

REACTIONS (22)
  - Panic attack [Recovering/Resolving]
  - Malaise [Unknown]
  - Fatigue [Unknown]
  - General symptom [Unknown]
  - Paraesthesia [Unknown]
  - Hypoaesthesia [Unknown]
  - Dyspnoea [Unknown]
  - Palpitations [Unknown]
  - Chest discomfort [Unknown]
  - Hyperventilation [Unknown]
  - Pain [Unknown]
  - Speech disorder [Unknown]
  - Dry mouth [Unknown]
  - Rhinorrhoea [Unknown]
  - Nasopharyngitis [Unknown]
  - Psoriasis [Unknown]
  - Rash [Unknown]
  - Guttate psoriasis [Unknown]
  - Tonsillitis [Unknown]
  - Contusion [Unknown]
  - Nausea [Unknown]
  - Pain in extremity [Unknown]

NARRATIVE: CASE EVENT DATE: 20240301
